FAERS Safety Report 8765269 (Version 1)
Quarter: 2012Q4

REPORT INFORMATION
  Report Type: 
  Country: FI (occurrence: FI)
  Receive Date: 20120831
  Receipt Date: 20120831
  Transmission Date: 20130627
  Serious: Yes (Other)
  Sender: FDA-Public Use
  Company Number: FI-B.I. PHARMACEUTICALS,INC./RIDGEFIELD-2012-EU-04260GD

PATIENT
  Age: 60 Year
  Sex: Male

DRUGS (2)
  1. ASASANTIN [Suspect]
     Indication: PROPHYLAXIS
     Route: 048
  2. PLAVIX [Concomitant]
     Indication: ANTICOAGULANT THERAPY

REACTIONS (3)
  - Type IV hypersensitivity reaction [Recovered/Resolved]
  - Eczema [Recovered/Resolved]
  - Pruritus generalised [Recovered/Resolved]
